FAERS Safety Report 16078185 (Version 1)
Quarter: 2019Q1

REPORT INFORMATION
  Report Type: Spontaneous
  Country: US (occurrence: US)
  Receive Date: 20190315
  Receipt Date: 20190315
  Transmission Date: 20190418
  Serious: No
  Sender: FDA-Public Use
  Company Number: PHEH2019US010605

PATIENT
  Sex: Female

DRUGS (2)
  1. PERPHENAZINE TABLETS USP [Suspect]
     Active Substance: PERPHENAZINE
     Indication: FLASHBACK
     Dosage: 4 MG, BID
     Route: 065
  2. PERPHENAZINE TABLETS USP [Suspect]
     Active Substance: PERPHENAZINE
     Dosage: UNK, 12 MG (PER DAY)
     Route: 065

REACTIONS (3)
  - Drug ineffective [Unknown]
  - Visual impairment [Unknown]
  - Incorrect dose administered [Unknown]
